FAERS Safety Report 6337438-1 (Version None)
Quarter: 2009Q3

REPORT INFORMATION
  Report Type: 
  Country: None (occurrence: None)
  Receive Date: 20090902
  Receipt Date: 20070518
  Transmission Date: 20100115
  Serious: Yes (Other)
  Sender: FDA-Public Use
  Company Number: US-ASTRAZENECA-2006UW23919

PATIENT
  Age: 22868 Day
  Sex: Female
  Weight: 83.9 kg

DRUGS (15)
  1. SEROQUEL [Suspect]
     Indication: SCHIZOPHRENIA
     Route: 048
     Dates: start: 20000301
  2. SEROQUEL [Suspect]
     Dosage: 200 MG - 800 MG
     Route: 048
     Dates: start: 20020514
  3. COGENTIN [Concomitant]
     Dosage: 2 MG - 500 MG
     Dates: start: 19991004
  4. DEPAKOTE [Concomitant]
     Dosage: 250 MG IN THE MORNING AND 500 MG AT BEDTIME
     Dates: start: 19991004
  5. ZYPREXA [Concomitant]
     Dates: start: 19991004
  6. CELEBREX [Concomitant]
     Dosage: 200 MG - 400 MG
     Dates: start: 20000727
  7. HALDOL [Concomitant]
     Dates: start: 20000914
  8. GABAPENTIN [Concomitant]
     Dosage: 300 MG IN THE MORNING AND 600 MG AT BEDTIME
     Dates: start: 20000914
  9. RISPERDAL [Concomitant]
  10. PAXIL [Concomitant]
     Route: 048
     Dates: start: 20020505
  11. AMBIEN [Concomitant]
     Dosage: 10 MG - 12.5 MG
     Dates: start: 20020505
  12. PROTONIX [Concomitant]
     Dates: start: 20030218
  13. EFFEXOR XR [Concomitant]
     Dosage: 37.5 MG - 150 MG
     Dates: start: 20030903
  14. DARVOCET [Concomitant]
     Dates: start: 20050724
  15. RESTORIL [Concomitant]
     Dosage: 15 MG AT NIGHT AS REQUIRED
     Route: 048
     Dates: start: 20050724

REACTIONS (7)
  - DIABETES MELLITUS [None]
  - DIABETES MELLITUS INADEQUATE CONTROL [None]
  - DIABETIC KETOACIDOSIS [None]
  - HYPERGLYCAEMIA [None]
  - NEUROPATHY PERIPHERAL [None]
  - TYPE 1 DIABETES MELLITUS [None]
  - TYPE 2 DIABETES MELLITUS [None]
